FAERS Safety Report 12641337 (Version 2)
Quarter: 2017Q1

REPORT INFORMATION
  Report Type: Spontaneous
  Country: US (occurrence: US)
  Receive Date: 20160810
  Receipt Date: 20170103
  Transmission Date: 20170428
  Serious: No
  Sender: FDA-Public Use
  Company Number: US-PFIZER INC-2016368640

PATIENT
  Age: 72 Year
  Sex: Male
  Weight: 124.7 kg

DRUGS (3)
  1. GABAPENTIN. [Suspect]
     Active Substance: GABAPENTIN
     Dosage: 100
  2. GABAPENTIN. [Suspect]
     Active Substance: GABAPENTIN
     Dosage: 300
  3. GABAPENTIN. [Suspect]
     Active Substance: GABAPENTIN
     Dosage: 600
     Dates: end: 201607

REACTIONS (1)
  - Drug ineffective [Unknown]
